FAERS Safety Report 18647030 (Version 4)
Quarter: 2021Q2

REPORT INFORMATION
  Report Type: Spontaneous
  Country: DE (occurrence: DE)
  Receive Date: 20201222
  Receipt Date: 20210525
  Transmission Date: 20210717
  Serious: Yes (Hospitalization, Other)
  Sender: FDA-Public Use
  Company Number: DE-ALXN-A202018916

PATIENT
  Age: 43 Year
  Sex: Male
  Weight: 108 kg

DRUGS (2)
  1. ULTOMIRIS [Suspect]
     Active Substance: RAVULIZUMAB-CWVZ
     Indication: PAROXYSMAL NOCTURNAL HAEMOGLOBINURIA
     Dosage: 3600 MG, EVERY 8 WEEKS
     Route: 065
  2. RAMIPRIL. [Concomitant]
     Active Substance: RAMIPRIL
     Indication: PRODUCT USED FOR UNKNOWN INDICATION
     Dosage: 5 MG, QD (PERMANENTLY)
     Route: 065

REACTIONS (4)
  - Haemolysis [Recovering/Resolving]
  - Flank pain [Unknown]
  - Erysipelas [Recovering/Resolving]
  - Dyspnoea [Unknown]
